FAERS Safety Report 14149506 (Version 1)
Quarter: 2017Q4

REPORT INFORMATION
  Report Type: Spontaneous
  Country: JP (occurrence: JP)
  Receive Date: 20171101
  Receipt Date: 20171101
  Transmission Date: 20180321
  Serious: Yes (Other)
  Sender: FDA-Public Use
  Company Number: JP-CELGENEUS-JPN-2016122610

PATIENT

DRUGS (1)
  1. ABRAXANE [Suspect]
     Active Substance: PACLITAXEL
     Indication: NON-SMALL CELL LUNG CANCER
     Dosage: 100 MG/M2
     Route: 041

REACTIONS (17)
  - Thrombocytopenia [Unknown]
  - Non-small cell lung cancer [Unknown]
  - Neutropenia [Unknown]
  - Decreased appetite [Unknown]
  - Fatigue [Unknown]
  - Peripheral sensory neuropathy [Unknown]
  - Infection [Unknown]
  - Oedema [Unknown]
  - Diarrhoea [Unknown]
  - Hepatic function abnormal [Unknown]
  - Anaemia [Unknown]
  - Transaminases increased [Unknown]
  - Vomiting [Unknown]
  - Febrile neutropenia [Unknown]
  - Leukopenia [Unknown]
  - Nausea [Unknown]
  - Hyperkalaemia [Unknown]
